FAERS Safety Report 4521698-3 (Version None)
Quarter: 2004Q4

REPORT INFORMATION
  Report Type: 
  Country: None (occurrence: None)
  Receive Date: 20041208
  Receipt Date: 20041208
  Transmission Date: 20050328
  Serious: Yes (Hospitalization)
  Sender: FDA-Public Use
  Company Number: None

PATIENT
  Sex: Male
  Weight: 83.6 kg

DRUGS (6)
  1. ETOPOSIDE [Suspect]
     Indication: SMALL CELL LUNG CANCER STAGE UNSPECIFIED
     Dosage: 258 MG IV, 259 MG IV, 252 MG IV, 250 MG IV
     Route: 042
     Dates: start: 20040907
  2. ETOPOSIDE [Suspect]
     Indication: SMALL CELL LUNG CANCER STAGE UNSPECIFIED
     Dosage: 258 MG IV, 259 MG IV, 252 MG IV, 250 MG IV
     Route: 042
     Dates: start: 20040929
  3. ETOPOSIDE [Suspect]
     Indication: SMALL CELL LUNG CANCER STAGE UNSPECIFIED
     Dosage: 258 MG IV, 259 MG IV, 252 MG IV, 250 MG IV
     Route: 042
     Dates: start: 20041026
  4. ETOPOSIDE [Suspect]
     Indication: SMALL CELL LUNG CANCER STAGE UNSPECIFIED
     Dosage: 258 MG IV, 259 MG IV, 252 MG IV, 250 MG IV
     Route: 042
     Dates: start: 20041123
  5. CISPLATIN [Suspect]
     Dosage: 129 MG IV, 129 MG IV, 126 MG IV, 125 MG IV
     Route: 042
  6. RADIATION THERAPY [Concomitant]

REACTIONS (4)
  - ABASIA [None]
  - ASTHENIA [None]
  - NEUTROPENIA [None]
  - THROMBOCYTOPENIA [None]
